FAERS Safety Report 9077523 (Version 1)
Quarter: 2013Q1

REPORT INFORMATION
  Report Type: Spontaneous
  Country: GB (occurrence: GB)
  Receive Date: 20130215
  Receipt Date: 20130215
  Transmission Date: 20140127
  Serious: Yes (Death, Hospitalization, Other)
  Sender: FDA-Public Use
  Company Number: PHHY2013GB014463

PATIENT
  Sex: 0

DRUGS (3)
  1. SIMVASTATIN [Suspect]
     Dosage: 40 MG, UNK
  2. ATORVASTATIN [Suspect]
     Dosage: 40 MG, UNK
     Dates: end: 200804
  3. EZETIMIBE [Concomitant]
     Dosage: 10 MG, UNK

REACTIONS (40)
  - Myocardial infarction [Fatal]
  - Respiratory failure [Fatal]
  - Motor neurone disease [Unknown]
  - Myopathy [Unknown]
  - Dyspnoea [Unknown]
  - General physical health deterioration [Unknown]
  - Periarthritis [Unknown]
  - Dysphonia [Unknown]
  - Muscle twitching [Unknown]
  - Muscle contractions involuntary [Unknown]
  - Hypotonia [Unknown]
  - Muscle spasms [Unknown]
  - Suffocation feeling [Unknown]
  - Posture abnormal [Unknown]
  - Anxiety [Unknown]
  - Pollakiuria [Unknown]
  - Mouth ulceration [Unknown]
  - Feeling abnormal [Unknown]
  - Pain in extremity [Unknown]
  - Fatigue [Unknown]
  - Affect lability [Unknown]
  - Psychiatric symptom [Unknown]
  - Peripheral coldness [Unknown]
  - Decreased appetite [Unknown]
  - Musculoskeletal pain [Unknown]
  - Hepatic function abnormal [Unknown]
  - Blood creatine phosphokinase increased [Unknown]
  - Neck pain [Unknown]
  - Gait disturbance [Unknown]
  - Back pain [Unknown]
  - Chromaturia [Unknown]
  - Urine abnormality [Unknown]
  - Abnormal dreams [Unknown]
  - Muscle atrophy [Unknown]
  - Asthenia [Unknown]
  - Myalgia [Unknown]
  - Dry mouth [Unknown]
  - Alopecia [Unknown]
  - Rash pruritic [Unknown]
  - Depression [Unknown]
